FAERS Safety Report 8182882-3 (Version None)
Quarter: 2012Q1

REPORT INFORMATION
  Report Type: 
  Country: None (occurrence: None)
  Receive Date: 20120305
  Receipt Date: 20120228
  Transmission Date: 20120608
  Serious: Yes (Other)
  Sender: FDA-Public Use
  Company Number: US-CELGENEUS-163-21880-12010750

PATIENT
  Sex: Female

DRUGS (4)
  1. CORDARONE [Concomitant]
     Dosage: 200 MILLIGRAM
     Route: 048
     Dates: start: 20120127
  2. LASIX [Concomitant]
     Dosage: 20 MILLIGRAM
     Route: 048
     Dates: start: 20110817
  3. KLOR-CON [Concomitant]
     Dosage: 40 MICROGRAM
     Route: 048
     Dates: start: 20111219
  4. REVLIMID [Suspect]
     Indication: MULTIPLE MYELOMA
     Dosage: 10 MILLIGRAM
     Route: 048
     Dates: start: 20111013

REACTIONS (1)
  - ATRIAL FIBRILLATION [None]
